FAERS Safety Report 7996817-7 (Version None)
Quarter: 2011Q4

REPORT INFORMATION
  Report Type: 
  Country: None (occurrence: None)
  Receive Date: 20111221
  Receipt Date: 20111027
  Transmission Date: 20120403
  Serious: Yes (Hospitalization, Disabling, Other)
  Sender: FDA-Public Use
  Company Number: US-NAPPMUNDI-USA-2011-0079839

PATIENT

DRUGS (1)
  1. OXYCONTIN [Suspect]
     Indication: PRODUCT USED FOR UNKNOWN INDICATION
     Dosage: UNK
     Dates: start: 20050701, end: 20080301

REACTIONS (3)
  - PNEUMONIA [None]
  - GAIT DISTURBANCE [None]
  - HEAD INJURY [None]
